FAERS Safety Report 7249925-2 (Version None)
Quarter: 2011Q1

REPORT INFORMATION
  Report Type: 
  Country: None (occurrence: None)
  Receive Date: 20110119
  Receipt Date: 20110119
  Transmission Date: 20110831
  Serious: Yes (Hospitalization)
  Sender: FDA-Public Use
  Company Number: None

PATIENT
  Age: 47 Year
  Sex: Female
  Weight: 65.7716 kg

DRUGS (2)
  1. MULTAQ [Suspect]
     Indication: ATRIAL FIBRILLATION
  2. LOVENOX [Suspect]
     Indication: THROMBOSIS PROPHYLAXIS

REACTIONS (12)
  - HYPOPHAGIA [None]
  - BLOOD PRESSURE INCREASED [None]
  - ABDOMINAL PAIN UPPER [None]
  - IMPAIRED GASTRIC EMPTYING [None]
  - NAUSEA [None]
  - TREMOR [None]
  - INSOMNIA [None]
  - PRESYNCOPE [None]
  - WEIGHT DECREASED [None]
  - HEART RATE INCREASED [None]
  - ASTHENIA [None]
  - GASTRIC DISORDER [None]
